FAERS Safety Report 6559578-4 (Version None)
Quarter: 2010Q1

REPORT INFORMATION
  Report Type: 
  Country: None (occurrence: None)
  Receive Date: 20100129
  Receipt Date: 20090902
  Transmission Date: 20100710
  Serious: No
  Sender: FDA-Public Use
  Company Number: US-ABBOTT-09P-163-0595199-00

PATIENT
  Sex: Female
  Weight: 76.726 kg

DRUGS (6)
  1. HUMIRA [Suspect]
     Indication: RHEUMATOID ARTHRITIS
     Route: 058
     Dates: start: 20090101, end: 20090601
  2. HUMIRA [Suspect]
     Route: 058
     Dates: start: 20090601
  3. METHOTREXATE [Concomitant]
     Indication: RHEUMATOID ARTHRITIS
     Route: 048
  4. LUNESTA [Concomitant]
     Indication: INSOMNIA
     Route: 048
  5. SERTRALINE HCL [Concomitant]
     Indication: FIBROMYALGIA
     Route: 048
  6. SERTRALINE HCL [Concomitant]
     Indication: DEPRESSION

REACTIONS (1)
  - DRUG EFFECT DECREASED [None]
